FAERS Safety Report 19814024 (Version 1)
Quarter: 2021Q3

REPORT INFORMATION
  Report Type: Spontaneous
  Country: US (occurrence: US)
  Receive Date: 20210909
  Receipt Date: 20210909
  Transmission Date: 20211014
  Serious: Yes (Hospitalization)
  Sender: FDA-Public Use
  Company Number: None

PATIENT
  Sex: Female

DRUGS (1)
  1. ABACAVIR/LAMIVUDINE 600/300MG LUPIN PHARMACEUTICALS [Suspect]
     Active Substance: ABACAVIR\LAMIVUDINE
     Indication: IMMUNODEFICIENCY
     Dosage: ?          OTHER DOSE:600/300MG;?
     Route: 048

REACTIONS (1)
  - Dehydration [None]
